FAERS Safety Report 10014731 (Version 2)
Quarter: 2014Q2

REPORT INFORMATION
  Report Type: Report from Study
  Country: US (occurrence: US)
  Receive Date: 20140317
  Receipt Date: 20140521
  Transmission Date: 20141212
  Serious: Yes (Other)
  Sender: FDA-Public Use
  Company Number: PHEH2014US004855

PATIENT
  Age: 71 Year
  Sex: Female

DRUGS (7)
  1. TASIGNA [Suspect]
     Indication: CHRONIC MYELOID LEUKAEMIA
     Dosage: 200 MG, BID
     Route: 048
     Dates: start: 20121227
  2. FLEXERIL [Concomitant]
  3. CLARINEX                                /DEN/ [Concomitant]
  4. OMEPRAZOLE [Concomitant]
  5. CYCLOBENZAPRINE [Concomitant]
  6. ONDANSETRON [Concomitant]
  7. HYDROCERIN [Concomitant]

REACTIONS (3)
  - Blood urine present [Not Recovered/Not Resolved]
  - Thrombosis [Not Recovered/Not Resolved]
  - Cystitis [Not Recovered/Not Resolved]
